FAERS Safety Report 18555481 (Version 2)
Quarter: 2021Q1

REPORT INFORMATION
  Report Type: Spontaneous
  Country: JP (occurrence: JP)
  Receive Date: 20201127
  Receipt Date: 20210112
  Transmission Date: 20210419
  Serious: Yes (Other)
  Sender: FDA-Public Use
  Company Number: NVSJ2020JP012313

PATIENT
  Age: 63 Year
  Sex: Male

DRUGS (1)
  1. ELTROMBOPAG [Suspect]
     Active Substance: ELTROMBOPAG
     Indication: IMMUNE THROMBOCYTOPENIA
     Dosage: UNK
     Route: 065

REACTIONS (2)
  - Myocardial infarction [Unknown]
  - Cardiac ventricular thrombosis [Unknown]
